FAERS Safety Report 5116750-8 (Version None)
Quarter: 2006Q3

REPORT INFORMATION
  Report Type: 
  Country: None (occurrence: None)
  Receive Date: 20060925
  Receipt Date: 20060907
  Transmission Date: 20061208
  Serious: Yes (Other)
  Sender: FDA-Public Use
  Company Number: 2006112650

PATIENT
  Age: 81 Year
  Sex: Male

DRUGS (1)
  1. PEGAPTANIB SODIUM (PEGAPTANIB SODIUM) [Suspect]
     Dosage: (1 IN 6 WK), INTRAVITREOUS
     Route: 050

REACTIONS (5)
  - FOREIGN BODY IN EYE [None]
  - MEDICAL DEVICE COMPLICATION [None]
  - SCAR [None]
  - VISUAL ACUITY REDUCED [None]
  - VITREOUS DISORDER [None]
